FAERS Safety Report 8510352-9 (Version None)
Quarter: 2012Q3

REPORT INFORMATION
  Report Type: 
  Country: None (occurrence: None)
  Receive Date: 20120713
  Receipt Date: 20120712
  Transmission Date: 20120928
  Serious: Yes (Hospitalization)
  Sender: FDA-Public Use
  Company Number: US-PFIZER INC-US-WYE-H13751610

PATIENT
  Sex: Female
  Weight: 58.5 kg

DRUGS (8)
  1. QUINAPRIL HCL [Suspect]
     Dosage: 10.0 MG, 1X/DAY
     Route: 048
     Dates: start: 20070101, end: 20100222
  2. NAPROSYN [Concomitant]
  3. LEXAPRO [Concomitant]
  4. BLINDED BAPINEUZUMAB [Suspect]
     Indication: DEMENTIA ALZHEIMER'S TYPE
     Dosage: BLINDED THERAPY
     Route: 051
     Dates: start: 20100111, end: 20100111
  5. DITROPAN [Concomitant]
  6. BLINDED NO SUBJECT DRUG [Suspect]
     Indication: DEMENTIA ALZHEIMER'S TYPE
     Dosage: BLINDED THERAPY
     Route: 051
     Dates: start: 20100111, end: 20100111
  7. PLACEBO [Suspect]
     Indication: DEMENTIA ALZHEIMER'S TYPE
     Dosage: BLINDED THERAPY
     Route: 051
     Dates: start: 20100111, end: 20100111
  8. ARICEPT [Concomitant]

REACTIONS (4)
  - SYNCOPE [None]
  - ORTHOSTATIC HYPOTENSION [None]
  - DIZZINESS [None]
  - FALL [None]
